FAERS Safety Report 9542480 (Version 2)
Quarter: 2013Q3

REPORT INFORMATION
  Report Type: Spontaneous
  Country: US (occurrence: US)
  Receive Date: 20130923
  Receipt Date: 20130927
  Transmission Date: 20140515
  Serious: No
  Sender: FDA-Public Use
  Company Number: US-009507513-1309USA009815

PATIENT
  Sex: Female

DRUGS (1)
  1. MIRALAX [Suspect]
     Indication: DIVERTICULITIS
     Dosage: 17 G, QOD
     Route: 048
     Dates: start: 201308

REACTIONS (3)
  - Diarrhoea [Unknown]
  - Inappropriate schedule of drug administration [Unknown]
  - Off label use [Unknown]
